FAERS Safety Report 25613916 (Version 3)
Quarter: 2025Q3

REPORT INFORMATION
  Report Type: Spontaneous
  Country: PE (occurrence: PE)
  Receive Date: 20250728
  Receipt Date: 20250903
  Transmission Date: 20251021
  Serious: No
  Sender: PFIZER
  Company Number: PE-PFIZER INC-202500056803

PATIENT
  Age: 6 Year
  Sex: Female

DRUGS (3)
  1. NGENLA [Suspect]
     Active Substance: SOMATROGON-GHLA
     Dosage: 14 MG, WEEKLY
     Route: 058
     Dates: start: 202501
  2. NGENLA [Suspect]
     Active Substance: SOMATROGON-GHLA
  3. NGENLA [Suspect]
     Active Substance: SOMATROGON-GHLA
     Dosage: 14 MG, WEEKLY
     Route: 058
     Dates: start: 202502, end: 202506

REACTIONS (5)
  - Device mechanical issue [Unknown]
  - Device delivery system issue [Unknown]
  - Device delivery system issue [Unknown]
  - Incorrect dose administered by device [Unknown]
  - Drug dose omission by device [Unknown]
